FAERS Safety Report 10761079 (Version 1)
Quarter: 2015Q1

REPORT INFORMATION
  Report Type: Spontaneous
  Country: US (occurrence: None)
  Receive Date: 20150203
  Receipt Date: 20150203
  Transmission Date: 20150721
  Serious: Yes (Hospitalization)
  Sender: FDA-Public Use
  Company Number: None

PATIENT
  Age: 51 Year
  Sex: Male

DRUGS (2)
  1. NEXAVAR [Suspect]
     Active Substance: SORAFENIB
     Indication: HEPATITIS VIRAL
     Route: 048
     Dates: start: 20140719
  2. ENTECAVIR. [Suspect]
     Active Substance: ENTECAVIR
     Indication: HEPATITIS VIRAL
     Route: 048
     Dates: start: 20141121

REACTIONS (2)
  - Product substitution issue [None]
  - Rash [None]

NARRATIVE: CASE EVENT DATE: 20150130
